FAERS Safety Report 6570569-X (Version None)
Quarter: 2010Q1

REPORT INFORMATION
  Report Type: 
  Country: None (occurrence: None)
  Receive Date: 20100204
  Receipt Date: 20100201
  Transmission Date: 20100710
  Serious: Yes (Other)
  Sender: FDA-Public Use
  Company Number: GXKR2010DE01389

PATIENT
  Sex: Female

DRUGS (1)
  1. PAROXAT (NGX) [Suspect]
     Indication: OBSESSIVE-COMPULSIVE DISORDER
     Dosage: 40 MG, QD
     Route: 048

REACTIONS (7)
  - ABDOMINAL PAIN [None]
  - ASTHENIA [None]
  - CHILLS [None]
  - CIRCULATORY COLLAPSE [None]
  - DIARRHOEA [None]
  - NAUSEA [None]
  - WITHDRAWAL SYNDROME [None]
